FAERS Safety Report 9812188 (Version 2)
Quarter: 2014Q1

REPORT INFORMATION
  Report Type: Report from Study
  Country: DK (occurrence: DK)
  Receive Date: 20140112
  Receipt Date: 20140112
  Transmission Date: 20141002
  Serious: Yes (Death, Hospitalization)
  Sender: FDA-Public Use
  Company Number: DK-BRISTOL-MYERS SQUIBB COMPANY-19891928

PATIENT
  Age: 72 Year
  Sex: Male

DRUGS (5)
  1. BLINDED: IPILIMUMAB [Suspect]
     Indication: NON-SMALL CELL LUNG CANCER
     Route: 042
     Dates: start: 20130725, end: 20130926
  2. PACLITAXEL [Suspect]
     Indication: NON-SMALL CELL LUNG CANCER
     Route: 042
     Dates: start: 20130610, end: 20130815
  3. CARBOPLATIN [Suspect]
     Indication: NON-SMALL CELL LUNG CANCER
     Dosage: 1 DF = AUC6
     Route: 042
     Dates: start: 20130610, end: 20130815
  4. BLINDED: PLACEBO [Suspect]
     Indication: NON-SMALL CELL LUNG CANCER
     Route: 042
     Dates: start: 20130725, end: 20130926
  5. PANTOPRAZOLE [Concomitant]
     Dosage: TABS ?ONGOING
     Dates: start: 20131023

REACTIONS (4)
  - Malignant neoplasm progression [Fatal]
  - Pulmonary embolism [Fatal]
  - Dyspnoea [Fatal]
  - Pyrexia [Recovered/Resolved]
